FAERS Safety Report 10020899 (Version 2)
Quarter: 2014Q1

REPORT INFORMATION
  Report Type: Spontaneous
  Country: US (occurrence: US)
  Receive Date: 20140319
  Receipt Date: 20140327
  Transmission Date: 20141002
  Serious: Yes (Hospitalization, Other)
  Sender: FDA-Public Use
  Company Number: US-AMGEN-USASP2014019037

PATIENT
  Age: 74 Year
  Sex: Female

DRUGS (1)
  1. ENBREL [Suspect]
     Indication: PSORIASIS
     Dosage: 50 MG, QWK
     Route: 058
     Dates: start: 20050928

REACTIONS (8)
  - Foot operation [Recovered/Resolved]
  - Lung neoplasm malignant [Recovered/Resolved]
  - Investigation [Recovered/Resolved]
  - Atrial fibrillation [Not Recovered/Not Resolved]
  - Ligament rupture [Recovered/Resolved]
  - Postoperative respiratory distress [Not Recovered/Not Resolved]
  - Cellulitis [Recovered/Resolved]
  - Pneumonia [Recovered/Resolved]
